APPROVED DRUG PRODUCT: ROBINUL FORTE
Active Ingredient: GLYCOPYRROLATE
Strength: 2MG **Federal Register determination that product was not discontinued or withdrawn for safety or effectiveness reasons**
Dosage Form/Route: TABLET;ORAL
Application: N012827 | Product #002 | TE Code: AA
Applicant: CASPER PHARMA LLC
Approved: Approved Prior to Jan 1, 1982 | RLD: Yes | RS: No | Type: RX